FAERS Safety Report 11644163 (Version 2)
Quarter: 2015Q4

REPORT INFORMATION
  Report Type: Spontaneous
  Country: US (occurrence: US)
  Receive Date: 20151020
  Receipt Date: 20151021
  Transmission Date: 20160304
  Serious: Yes (Disabling, Other)
  Sender: FDA-Public Use
  Company Number: US-SHIONOGI, INC-2015001106

PATIENT
  Age: 4 Year
  Sex: Male

DRUGS (1)
  1. ROBINUL [Suspect]
     Active Substance: GLYCOPYRROLATE
     Indication: PRODUCT USED FOR UNKNOWN INDICATION
     Dosage: 5MG/ML, SINGLE
     Route: 065
     Dates: start: 2010, end: 2010

REACTIONS (8)
  - Mechanical ventilation [Recovered/Resolved]
  - Developmental delay [Not Recovered/Not Resolved]
  - Coma [Unknown]
  - Pneumonia pseudomonal [Unknown]
  - Renal failure [Unknown]
  - Pulmonary hypertension [Unknown]
  - Drug administration error [Unknown]
  - Speech disorder developmental [Not Recovered/Not Resolved]

NARRATIVE: CASE EVENT DATE: 2010
